FAERS Safety Report 15864780 (Version 6)
Quarter: 2020Q2

REPORT INFORMATION
  Report Type: Report from Study
  Country: US (occurrence: US)
  Receive Date: 20190124
  Receipt Date: 20200413
  Transmission Date: 20200713
  Serious: Yes (Hospitalization)
  Sender: FDA-Public Use
  Company Number: US-ACTELION-A-US2018-167004

PATIENT
  Sex: Female
  Weight: 68.93 kg

DRUGS (10)
  1. SILDENAFIL CITRATE. [Concomitant]
     Active Substance: SILDENAFIL CITRATE
  2. CHLORAPREP [Suspect]
     Active Substance: CHLORHEXIDINE GLUCONATE\ISOPROPYL ALCOHOL
     Indication: PRODUCT USED FOR UNKNOWN INDICATION
     Route: 061
  3. VELETRI [Suspect]
     Active Substance: EPOPROSTENOL
     Dosage: 41.66 NG/KG, PER MIN
     Route: 042
  4. VELETRI [Suspect]
     Active Substance: EPOPROSTENOL
     Dosage: 41.5 NG/KG, PER MIN
     Route: 042
  5. VELETRI [Suspect]
     Active Substance: EPOPROSTENOL
     Dosage: 42.14 NG/KG, PER MIN
     Route: 042
  6. VELETRI [Suspect]
     Active Substance: EPOPROSTENOL
     Dosage: 31 NG/KG, PER MIN
     Route: 042
  7. VELETRI [Suspect]
     Active Substance: EPOPROSTENOL
     Indication: PULMONARY ARTERIAL HYPERTENSION
     Dosage: 7 NG/KG, PER MIN
     Route: 042
  8. TRACLEER [Suspect]
     Active Substance: BOSENTAN
     Indication: PULMONARY ARTERIAL HYPERTENSION
     Dosage: 125 MG, BID
     Route: 048
  9. VELETRI [Suspect]
     Active Substance: EPOPROSTENOL
     Dosage: 26 NG/KG, PER MIN
     Route: 042
  10. VELETRI [Suspect]
     Active Substance: EPOPROSTENOL
     Dosage: 42 NG/KG, PER MIN
     Route: 042

REACTIONS (29)
  - Nausea [Recovering/Resolving]
  - Neck pain [Unknown]
  - Peripheral swelling [Unknown]
  - Dizziness [Unknown]
  - Lacrimation increased [Unknown]
  - Headache [Not Recovered/Not Resolved]
  - Pain in extremity [Unknown]
  - Swelling face [Unknown]
  - Application site hypersensitivity [Unknown]
  - Cough [Unknown]
  - Myalgia [Unknown]
  - Arthralgia [Unknown]
  - Back pain [Unknown]
  - Hyperhidrosis [Unknown]
  - Device leakage [Unknown]
  - Dyspnoea exertional [Unknown]
  - Fluid retention [Unknown]
  - Vision blurred [Unknown]
  - Bronchiolitis [Unknown]
  - Seasonal allergy [Unknown]
  - Vomiting [Unknown]
  - Device breakage [Unknown]
  - Joint swelling [Unknown]
  - Gait disturbance [Recovering/Resolving]
  - Flushing [Unknown]
  - Pain [Recovering/Resolving]
  - Blister infected [Unknown]
  - Pain in jaw [Unknown]
  - Dysstasia [Recovering/Resolving]
